FAERS Safety Report 8132092-0 (Version None)
Quarter: 2012Q1

REPORT INFORMATION
  Report Type: 
  Country: None (occurrence: None)
  Receive Date: 20120201
  Receipt Date: 20120103
  Transmission Date: 20120608
  Serious: Yes (Hospitalization)
  Sender: FDA-Public Use
  Company Number: ALB-005-10-FR

PATIENT
  Age: 2 Year
  Sex: Male

DRUGS (11)
  1. AUGMENTIN '125' [Suspect]
     Indication: SKIN LESION
     Dosage: 150 MG/KG - 1 X 1/D, INTRAVENOUS (NOT OTHERWISE SPECIFIED)
     Route: 042
     Dates: start: 20100428, end: 20100430
  2. ZOVIRAX [Suspect]
     Indication: SKIN LESION
     Dosage: 500 MG/M2 - 1 X 1/D, INTRAVENOUS (NOT OTHERWISE SPECIFIED)
     Route: 042
     Dates: start: 20100428, end: 20100501
  3. ALBUMIN (HUMAN) [Suspect]
     Indication: SKIN LESION
     Dosage: 10 G - 1 X 1 / D, INTRAVENOUS (NOT OTHERWISE SPECIFIED)
     Route: 042
     Dates: start: 20100429, end: 20100501
  4. RIFAMYCINE [Concomitant]
  5. GENTAMICIN [Suspect]
     Indication: SKIN LESION
     Dosage: 5 MG/KG - 1 X 1/D, INTRAVENOUS (NOT OTHERWISE SPECIFIED)
     Route: 042
     Dates: start: 20100428, end: 20100430
  6. VITAMIN A [Concomitant]
  7. CLOXACILLIN SODIUM [Suspect]
     Indication: STAPHYLOCOCCAL INFECTION
     Dosage: 150 MG/KG-1X 1/D, INTRAVENOUS (NOT OTHERWISE SPECIFIED)
     Route: 042
     Dates: start: 20100430, end: 20100505
  8. ACETAMINOPHEN [Concomitant]
  9. HYPNOVEL (MIDAZOLAM) [Concomitant]
  10. SUFENTA (SUFENTANIL) [Concomitant]
  11. OMEPRAZOLE [Concomitant]

REACTIONS (3)
  - DRUG RASH WITH EOSINOPHILIA AND SYSTEMIC SYMPTOMS [None]
  - TOXIC SKIN ERUPTION [None]
  - WHITE BLOOD CELL COUNT INCREASED [None]
